FAERS Safety Report 6139152-4 (Version None)
Quarter: 2009Q2

REPORT INFORMATION
  Report Type: 
  Country: None (occurrence: None)
  Receive Date: 20090401
  Receipt Date: 20090320
  Transmission Date: 20091009
  Serious: Yes (Hospitalization)
  Sender: FDA-Public Use
  Company Number: HR-PFIZER INC-2009186027

PATIENT

DRUGS (3)
  1. SALAZOPYRINE EN [Suspect]
     Indication: ARTHRITIS REACTIVE
     Route: 048
  2. ALLOPURINOL [Concomitant]
  3. LISINOPRIL [Concomitant]

REACTIONS (4)
  - ARTHRALGIA [None]
  - BACK PAIN [None]
  - PRODUCTIVE COUGH [None]
  - PYREXIA [None]
